FAERS Safety Report 4745486-8 (Version None)
Quarter: 2005Q3

REPORT INFORMATION
  Report Type: 
  Country: None (occurrence: None)
  Receive Date: 20050812
  Receipt Date: 20050802
  Transmission Date: 20060218
  Serious: Yes (Other)
  Sender: FDA-Public Use
  Company Number: EM2005-0372

PATIENT
  Age: 48 Year
  Sex: Male

DRUGS (1)
  1. PROLEUKIN [Suspect]
     Indication: RENAL CELL CARCINOMA STAGE UNSPECIFIED
     Dosage: 0.6 MIU, Q8H, IV BOLUS
     Route: 040

REACTIONS (3)
  - BLOOD 1,25-DIHYDROXYCHOLECALCIFEROL INCREASED [None]
  - HYPERCALCAEMIA [None]
  - PYREXIA [None]
